FAERS Safety Report 5691002-6 (Version None)
Quarter: 2008Q2

REPORT INFORMATION
  Report Type: 
  Country: None (occurrence: None)
  Receive Date: 20080401
  Receipt Date: 20080325
  Transmission Date: 20081010
  Serious: Yes (Other)
  Sender: FDA-Public Use
  Company Number: US-PFIZER INC-2008012215

PATIENT
  Sex: Female

DRUGS (12)
  1. XALATAN [Suspect]
     Indication: GLAUCOMA
     Dosage: DAILY DOSE:2DROP-TEXT:0.005%
     Route: 047
  2. XAL-EASE [Suspect]
  3. FUROSEMIDE [Concomitant]
  4. COZAAR [Concomitant]
  5. SYNTHROID [Concomitant]
  6. ZIAC [Concomitant]
  7. ZOCOR [Concomitant]
  8. GLUCOPHAGE [Concomitant]
  9. PLAVIX [Concomitant]
  10. ALL OTHER THERAPEUTIC PRODUCTS [Concomitant]
  11. POTASSIUM CHLORIDE [Concomitant]
  12. ACETYLSALICYLIC ACID SRT [Concomitant]
     Dosage: DAILY DOSE:325MG

REACTIONS (11)
  - DEHYDRATION [None]
  - DIARRHOEA [None]
  - DIZZINESS [None]
  - EYE PRURITUS [None]
  - MEDICAL DEVICE COMPLICATION [None]
  - MEDICATION ERROR [None]
  - NEURALGIA [None]
  - PAIN IN EXTREMITY [None]
  - PHARMACEUTICAL PRODUCT COMPLAINT [None]
  - VISUAL ACUITY REDUCED [None]
  - WEIGHT DECREASED [None]
